FAERS Safety Report 14733814 (Version 2)
Quarter: 2018Q2

REPORT INFORMATION
  Report Type: Report from Study
  Country: AR (occurrence: AR)
  Receive Date: 20180409
  Receipt Date: 20180419
  Transmission Date: 20180711
  Serious: Yes (Hospitalization)
  Sender: FDA-Public Use
  Company Number: PHHY2018AR058287

PATIENT
  Sex: Female

DRUGS (1)
  1. ENTRESTO [Suspect]
     Active Substance: SACUBITRIL\VALSARTAN
     Indication: CARDIAC FAILURE
     Dosage: 0.5 DF, BID (HALF IN THE MORNING,HALF IN THE AFTERNOON)
     Route: 065
     Dates: start: 201711

REACTIONS (8)
  - Memory impairment [Unknown]
  - Drug prescribing error [Unknown]
  - Fall [Recovering/Resolving]
  - Musculoskeletal pain [Unknown]
  - Femur fracture [Recovering/Resolving]
  - Cardiac disorder [Unknown]
  - Agitation [Unknown]
  - Wrong technique in product usage process [Unknown]
